FAERS Safety Report 9981910 (Version 1)
Quarter: 2014Q1

REPORT INFORMATION
  Report Type: Spontaneous
  Country: US (occurrence: None)
  Receive Date: 20140306
  Receipt Date: 20140306
  Transmission Date: 20141002
  Serious: No
  Sender: FDA-Public Use
  Company Number: None

PATIENT
  Age: 71 Year
  Sex: Male

DRUGS (9)
  1. BUTRANS 20MCG/HR LTS LOHMANN THERAPIE-SYSTEMS AG [Suspect]
     Indication: INTERMITTENT CLAUDICATION
     Dosage: 1 PATCH, ONCE WEEKLY, TRANSDERMAL
     Route: 062
  2. METFORMIN [Concomitant]
  3. GLYSET [Concomitant]
  4. PIOGLITAZONE [Concomitant]
  5. JANUVIA [Concomitant]
  6. VERAPAMIL [Concomitant]
  7. LYRICA [Concomitant]
  8. MULTIVITAMIN [Concomitant]
  9. STOOL SOFTENER [Concomitant]

REACTIONS (2)
  - Application site erythema [None]
  - Application site pruritus [None]
